FAERS Safety Report 16387139 (Version 1)
Quarter: 2019Q2

REPORT INFORMATION
  Report Type: Spontaneous
  Country: CA (occurrence: CA)
  Receive Date: 20190604
  Receipt Date: 20190604
  Transmission Date: 20190711
  Serious: Yes (Other)
  Sender: FDA-Public Use
  Company Number: CA-AUROBINDO-AUR-APL-2019-030036

PATIENT

DRUGS (6)
  1. ALENDRONIC ACID TABLETS [Suspect]
     Active Substance: ALENDRONIC ACID
     Indication: OSTEOPOROSIS POSTMENOPAUSAL
  2. RISEDRONATE [Suspect]
     Active Substance: RISEDRONATE SODIUM
     Indication: OSTEOPOROSIS POSTMENOPAUSAL
     Dosage: UNK
     Route: 065
  3. ALENDRONIC ACID TABLETS [Suspect]
     Active Substance: ALENDRONIC ACID
     Indication: PATELLA FRACTURE
     Dosage: UNK
     Route: 065
  4. ESTRADIOL. [Concomitant]
     Active Substance: ESTRADIOL
     Indication: MENOPAUSAL SYMPTOMS PROPHYLAXIS
     Dosage: 0.025 MILLIGRAM, ONCE A DAY
     Route: 062
  5. PAMIDRONATE DISODIUM. [Suspect]
     Active Substance: PAMIDRONATE DISODIUM
     Indication: MUSCULOSKELETAL DISORDER
     Dosage: 90 MILLIGRAM, ONCE A DAY
     Route: 042
  6. PAMIDRONATE DISODIUM. [Suspect]
     Active Substance: PAMIDRONATE DISODIUM
     Dosage: 60 MILLIGRAM, ONCE A DAY
     Route: 042

REACTIONS (5)
  - Atypical femur fracture [Recovered/Resolved]
  - Fall [Recovered/Resolved]
  - Back pain [Recovered/Resolved]
  - Plasma cell myeloma [Recovered/Resolved]
  - Scapula fracture [Recovered/Resolved]
